FAERS Safety Report 10673871 (Version 1)
Quarter: 2014Q4

REPORT INFORMATION
  Report Type: Spontaneous
  Country: GB (occurrence: GB)
  Receive Date: 20141224
  Receipt Date: 20141224
  Transmission Date: 20150529
  Serious: Yes (Hospitalization)
  Sender: FDA-Public Use
  Company Number: GB-JNJFOC-20141216291

PATIENT
  Age: 76 Year
  Sex: Female

DRUGS (6)
  1. DIAZEPAM. [Suspect]
     Active Substance: DIAZEPAM
     Indication: SCIATICA
     Dosage: 2 TO 4MG EVERY NIGHT, AS REQUIRED
     Route: 065
     Dates: start: 20141124, end: 20141130
  2. COCODAMOL [Suspect]
     Active Substance: ACETAMINOPHEN\CODEINE PHOSPHATE
     Indication: SCIATICA
     Dosage: 30/500 , 4 AS REQUIRED
     Route: 065
     Dates: start: 20141124, end: 20141130
  3. TRAMADOL [Suspect]
     Active Substance: TRAMADOL
     Indication: SCIATICA
     Dosage: 50 TO 100MG FOUR TIMES A DAY, AS REQUIRED
     Route: 065
     Dates: start: 20141124, end: 20141130
  4. ADCAL-D3 [Concomitant]
     Active Substance: CALCIUM CARBONATE\CHOLECALCIFEROL
     Route: 065
  5. ALENDRONIC ACID [Concomitant]
     Active Substance: ALENDRONIC ACID
     Route: 065
  6. LYRICA [Suspect]
     Active Substance: PREGABALIN
     Indication: SCIATICA
     Dosage: CUMULATIVE DOSE: 1800 UNITS NOS
     Route: 065
     Dates: start: 20141124, end: 20141130

REACTIONS (3)
  - Confusional state [Recovering/Resolving]
  - Hallucination [Recovering/Resolving]
  - Delirium [Recovering/Resolving]

NARRATIVE: CASE EVENT DATE: 20141127
